FAERS Safety Report 9385107 (Version 1)
Quarter: 2013Q3

REPORT INFORMATION
  Report Type: Spontaneous
  Country: GB (occurrence: None)
  Receive Date: 20130701
  Receipt Date: 20130701
  Transmission Date: 20140515
  Serious: Yes (Hospitalization, Disabling)
  Sender: FDA-Public Use
  Company Number: GER/UKI/13/0030211

PATIENT
  Age: 25 Year
  Sex: Female

DRUGS (8)
  1. QUETIAPINE (QUETIAPINE) [Suspect]
     Indication: PSYCHOTIC DISORDER
     Route: 048
     Dates: start: 20130208
  2. CLARITHYROMYCIN (CLARITHROMYCIN) [Concomitant]
  3. CODEINE PHOSPHATE (CODEINE PHOSPHATE) [Concomitant]
  4. MIRTAZAPINE (MIRTAZAPINE) [Concomitant]
  5. MEBEVERINE (MEBEVERINE) [Concomitant]
  6. PROCYCLIDINE (PROCYCLIDINE) [Concomitant]
  7. CYCLIZINE HYDROCHLORIDE (CYCLIZINE HYDROCHLORIDE) [Concomitant]
  8. TRIMETHOPRIM (TRIMETHOPRIM) [Concomitant]

REACTIONS (1)
  - Myositis [None]
